FAERS Safety Report 6537214-0 (Version None)
Quarter: 2010Q1

REPORT INFORMATION
  Report Type: 
  Country: None (occurrence: None)
  Receive Date: 20100114
  Receipt Date: 20100107
  Transmission Date: 20100710
  Serious: Yes (Hospitalization)
  Sender: FDA-Public Use
  Company Number: JP-ROCHE-591435

PATIENT
  Sex: Male
  Weight: 44.5 kg

DRUGS (18)
  1. ACTEMRA [Suspect]
     Indication: RHEUMATOID ARTHRITIS
     Route: 041
     Dates: start: 20080827, end: 20080827
  2. ACTEMRA [Suspect]
     Route: 041
     Dates: start: 20080930, end: 20080930
  3. ACTEMRA [Suspect]
     Route: 041
     Dates: start: 20081024, end: 20081024
  4. ACTEMRA [Suspect]
     Route: 041
     Dates: start: 20081119, end: 20081119
  5. ACTEMRA [Suspect]
     Route: 041
     Dates: start: 20081217, end: 20081217
  6. ACTEMRA [Suspect]
     Route: 041
     Dates: start: 20090114, end: 20090114
  7. ACTEMRA [Suspect]
     Route: 041
     Dates: start: 20090206, end: 20090206
  8. RHEUMATREX [Suspect]
     Indication: RHEUMATOID ARTHRITIS
     Route: 048
  9. PREDNISOLONE [Suspect]
     Indication: RHEUMATOID ARTHRITIS
     Route: 048
     Dates: end: 20090113
  10. PREDNISOLONE [Suspect]
     Route: 048
     Dates: start: 20090114, end: 20090205
  11. PREDNISOLONE [Suspect]
     Route: 048
     Dates: start: 20090206, end: 20090305
  12. PREDNISOLONE [Suspect]
     Route: 048
     Dates: start: 20090306
  13. RIMATIL [Concomitant]
     Route: 048
     Dates: start: 20080229
  14. ISCOTIN [Concomitant]
     Dosage: FORMULATION: ORAL FORMULATION (NOT OTHERWISE SPECIFIED).
     Route: 048
     Dates: start: 20080802
  15. LOXONIN [Concomitant]
     Dosage: FORMULATION: ORAL FORMULATION (NOT OTHERWISE SPECIFIED).
     Route: 048
  16. MUCOSTA [Concomitant]
     Dosage: FORMULATION: ORAL FORMULATION (NOT OTHERWISE SPECIFIED).
     Route: 048
  17. TAKEPRON [Concomitant]
     Route: 048
  18. SEIBULE [Concomitant]
     Route: 048

REACTIONS (2)
  - BRONCHITIS [None]
  - C-REACTIVE PROTEIN INCREASED [None]
